FAERS Safety Report 20176310 (Version 1)
Quarter: 2021Q4

REPORT INFORMATION
  Report Type: Spontaneous
  Country: US (occurrence: None)
  Receive Date: 20211210
  Receipt Date: 20211210
  Transmission Date: 20220304
  Serious: Yes (Disabling, Other)
  Sender: FDA-Public Use
  Company Number: None

PATIENT
  Age: 28 Month
  Sex: Male
  Weight: 18.9 kg

DRUGS (5)
  1. MONTELUKAST [Suspect]
     Active Substance: MONTELUKAST SODIUM
     Indication: Asthma
     Dosage: OTHER QUANTITY : 1 TABLET(S);?
     Route: 048
     Dates: start: 20181214, end: 20201110
  2. MONTELUKAST [Suspect]
     Active Substance: MONTELUKAST SODIUM
     Indication: Hypersensitivity
  3. MONTELUKAST [Suspect]
     Active Substance: MONTELUKAST SODIUM
     Indication: Eczema
  4. ALBUTEROL [Concomitant]
     Active Substance: ALBUTEROL
  5. ADDERALL [Concomitant]
     Active Substance: AMPHETAMINE ASPARTATE\AMPHETAMINE SULFATE\DEXTROAMPHETAMINE SACCHARATE\DEXTROAMPHETAMINE SULFATE

REACTIONS (15)
  - Psychomotor hyperactivity [None]
  - Anger [None]
  - Mood swings [None]
  - Aggression [None]
  - Aggression [None]
  - Impulsive behaviour [None]
  - Insomnia [None]
  - Sleep terror [None]
  - Dysphemia [None]
  - Logorrhoea [None]
  - Physical assault [None]
  - Behaviour disorder [None]
  - Therapy interrupted [None]
  - Asthma [None]
  - Eczema [None]

NARRATIVE: CASE EVENT DATE: 20181214
